FAERS Safety Report 17489320 (Version 2)
Quarter: 2020Q1

REPORT INFORMATION
  Report Type: Spontaneous
  Country: US (occurrence: US)
  Receive Date: 20200303
  Receipt Date: 20200303
  Transmission Date: 20200409
  Serious: Yes (Other)
  Sender: FDA-Public Use
  Company Number: US-PFIZER INC-2020090835

PATIENT
  Sex: Female

DRUGS (2)
  1. NEURONTIN [Suspect]
     Active Substance: GABAPENTIN
     Dosage: UNK
  2. GABAPENTIN. [Suspect]
     Active Substance: GABAPENTIN
     Dosage: UNK

REACTIONS (9)
  - Tooth loss [Unknown]
  - Fall [Unknown]
  - Loose tooth [Unknown]
  - Allergy to metals [Unknown]
  - Malaise [Unknown]
  - Blood lead increased [Unknown]
  - Coordination abnormal [Unknown]
  - Balance disorder [Unknown]
  - Tooth disorder [Unknown]
